FAERS Safety Report 9095647 (Version 1)
Quarter: 2013Q1

REPORT INFORMATION
  Report Type: Spontaneous
  Country: FR (occurrence: FR)
  Receive Date: 20130220
  Receipt Date: 20130220
  Transmission Date: 20140127
  Serious: Yes (Hospitalization)
  Sender: FDA-Public Use
  Company Number: PHHY2013FR015303

PATIENT
  Age: 90 Year
  Sex: Female

DRUGS (14)
  1. EXELON PATCH [Suspect]
     Dosage: 9.5 MG, QD
     Route: 062
  2. PAROXETINE [Suspect]
     Dosage: 1 DF IN THE MORNING, UNK
     Route: 048
     Dates: start: 20121129, end: 20130112
  3. OFLOXACINE [Suspect]
     Indication: URINARY TRACT INFECTION
     Dosage: 1 DF, BID
     Route: 048
     Dates: start: 20130111, end: 20130112
  4. OFLOXACINE [Suspect]
     Dosage: UNK UKN, UNK
     Dates: start: 20130114
  5. CORTANCYL [Concomitant]
     Dosage: UNK UKN, UNK
  6. DOLIPRANE [Concomitant]
     Dosage: UNK UKN, UNK
  7. GAVISCON [Concomitant]
     Dosage: UNK UKN, UNK
  8. INEXIUM [Concomitant]
     Dosage: 20 MG, UNK
  9. KARDEGIC [Concomitant]
     Dosage: 75 MG, UNK
  10. NORMACOL LAVEMENT [Concomitant]
     Dosage: UNK UKN, UNK
  11. TRANSIPEG [Concomitant]
     Dosage: 5.9 G, UNK
  12. UNIFLUID [Concomitant]
     Dosage: UNK UKN, UNK
  13. VITAMIIN A [Concomitant]
     Dosage: UNK UKN, UNK
  14. UVEDOSE [Concomitant]
     Dosage: UNK UKN, UNK

REACTIONS (3)
  - Epilepsy [Recovered/Resolved]
  - Loss of consciousness [Unknown]
  - Malaise [Recovered/Resolved]
